FAERS Safety Report 9462644 (Version 1)
Quarter: 2013Q3

REPORT INFORMATION
  Report Type: Spontaneous
  Country: US (occurrence: US)
  Receive Date: 20130816
  Receipt Date: 20130816
  Transmission Date: 20140515
  Serious: Yes (Life-Threatening, Hospitalization, Other)
  Sender: FDA-Public Use
  Company Number: US-ELI_LILLY_AND_COMPANY-US201308003141

PATIENT
  Age: 71 Year
  Sex: Male

DRUGS (1)
  1. HUMULIN NPH [Suspect]
     Indication: TYPE 2 DIABETES MELLITUS
     Dosage: 8 U, EACH MORNING

REACTIONS (2)
  - Sepsis [Unknown]
  - Renal disorder [Unknown]
